FAERS Safety Report 6925256-2 (Version None)
Quarter: 2010Q3

REPORT INFORMATION
  Report Type: 
  Country: None (occurrence: None)
  Receive Date: 20100816
  Receipt Date: 20100811
  Transmission Date: 20110219
  Serious: Yes (Hospitalization)
  Sender: FDA-Public Use
  Company Number: US-BRISTOL-MYERS SQUIBB COMPANY-15223985

PATIENT
  Age: 68 Year
  Sex: Male
  Weight: 79 kg

DRUGS (2)
  1. GLUCOPHAGE [Suspect]
     Indication: DIABETES MELLITUS
     Dosage: USING FOR 3 PLUS YRS (2007-2010).
     Route: 048
     Dates: start: 20070516
  2. AMARYL [Concomitant]
     Route: 048

REACTIONS (1)
  - TRANSITIONAL CELL CARCINOMA [None]
